FAERS Safety Report 4995347-4 (Version None)
Quarter: 2006Q2

REPORT INFORMATION
  Report Type: 
  Country: None (occurrence: None)
  Receive Date: 20060503
  Receipt Date: 20060414
  Transmission Date: 20061013
  Serious: Yes (Other)
  Sender: FDA-Public Use
  Company Number: US200603007204

PATIENT
  Age: 16 Year
  Sex: Male
  Weight: 61.7 kg

DRUGS (1)
  1. SOMATROPIN (SOMATROPIN) [Suspect]
     Indication: BODY HEIGHT BELOW NORMAL
     Dosage: 2 MG, DAILY (1/D), SUBCUTANEOUS
     Route: 058
     Dates: start: 20060321, end: 20060327

REACTIONS (1)
  - SWELLING FACE [None]
